FAERS Safety Report 5449735-2 (Version None)
Quarter: 2007Q3

REPORT INFORMATION
  Report Type: 
  Country: None (occurrence: None)
  Receive Date: 20070910
  Receipt Date: 20070828
  Transmission Date: 20080115
  Serious: Yes (Hospitalization)
  Sender: FDA-Public Use
  Company Number: 2005P1000513

PATIENT
  Age: 76 Year
  Sex: Male
  Weight: 84 kg

DRUGS (14)
  1. PLACEBO (PLACEBO) [Concomitant]
     Indication: ACUTE MYOCARDIAL INFARCTION
     Dosage: 5 IU;X1;IV; 0.25 MG/KG;X1;IV
     Route: 042
     Dates: start: 20050110
  2. PLACEBO (PLACEBO) [Concomitant]
     Indication: ACUTE MYOCARDIAL INFARCTION
     Dosage: 5 IU;X1;IV; 0.25 MG/KG;X1;IV
     Route: 042
     Dates: start: 20050110
  3. ABCIXIMAB (ABCIXIMAB) [Suspect]
     Indication: ACUTE MYOCARDIAL INFARCTION
     Dosage: 10.5 MG;X1;IV; 204 MG;X1;IV
     Route: 042
     Dates: start: 20050110
  4. ABCIXIMAB (ABCIXIMAB) [Suspect]
     Indication: ACUTE MYOCARDIAL INFARCTION
     Dosage: 10.5 MG;X1;IV; 204 MG;X1;IV
     Route: 042
     Dates: start: 20050110
  5. ASPIRIN [Concomitant]
  6. CLOPIDOGREL BISULFATE [Concomitant]
  7. SIMVASTATIN [Concomitant]
  8. BETAXOLOL HYDROCHLORIDE [Concomitant]
  9. RAMIPRIL [Concomitant]
  10. ISOSORBIDE MONONITRATE [Concomitant]
  11. METOPROLOL SUCCINATE [Concomitant]
  12. AMILORIDE HYDROCHLORIDE [Concomitant]
  13. OMEPRAZOLE [Concomitant]
  14. ALL OTHER THERAPEUTIC PRODUCTS [Concomitant]

REACTIONS (4)
  - ANXIETY [None]
  - CORONARY ARTERY DISEASE [None]
  - CORONARY ARTERY STENOSIS [None]
  - DRUG INEFFECTIVE [None]
